FAERS Safety Report 5593222-8 (Version None)
Quarter: 2008Q1

REPORT INFORMATION
  Report Type: 
  Country: None (occurrence: None)
  Receive Date: 20080114
  Receipt Date: 20080107
  Transmission Date: 20080703
  Serious: Yes (Hospitalization)
  Sender: FDA-Public Use
  Company Number: 2008EU000042

PATIENT
  Age: 74 Year
  Sex: Male

DRUGS (3)
  1. VESICARE [Suspect]
     Indication: DYSURIA
     Dosage: D, ORAL
     Route: 048
     Dates: start: 20070412, end: 20070428
  2. EXELON [Suspect]
     Indication: DEMENTIA
     Dosage: D, ORAL
     Route: 048
     Dates: start: 20070412, end: 20070428
  3. SIMVASTATIN [Concomitant]

REACTIONS (5)
  - DIZZINESS [None]
  - FALL [None]
  - MUSCULAR WEAKNESS [None]
  - NAUSEA [None]
  - VOMITING [None]
